FAERS Safety Report 6771150-X (Version None)
Quarter: 2010Q2

REPORT INFORMATION
  Report Type: 
  Country: None (occurrence: None)
  Receive Date: 20100614
  Receipt Date: 20100614
  Transmission Date: 20101027
  Serious: Yes (Life-Threatening, Hospitalization)
  Sender: FDA-Public Use
  Company Number: None

PATIENT
  Age: 61 Year
  Sex: Female
  Weight: 81.6475 kg

DRUGS (1)
  1. OSMOPRED 1.5 GM (20 TABS TAKEN) [Suspect]
     Dosage: 4 TABS EVERY 15 MIN
     Dates: start: 20100523

REACTIONS (7)
  - CARDIAC MURMUR [None]
  - PAIN [None]
  - PRODUCT QUALITY ISSUE [None]
  - PRURITUS [None]
  - RASH [None]
  - RENAL DISORDER [None]
  - VOMITING [None]
